FAERS Safety Report 5167538-3 (Version None)
Quarter: 2006Q4

REPORT INFORMATION
  Report Type: 
  Country: None (occurrence: None)
  Receive Date: 20060830
  Receipt Date: 20060626
  Transmission Date: 20070319
  Serious: No
  Sender: FDA-Public Use
  Company Number: 226811

PATIENT
  Age: 17 Year
  Sex: Male
  Weight: 137.4 kg

DRUGS (7)
  1. XOLAIR [Suspect]
     Indication: ASTHMA
     Dosage: 225 MG, Q2W, SUBCUTANEOUS
     Route: 058
     Dates: start: 20040218
  2. PULMICORT [Concomitant]
  3. FORADIL [Concomitant]
  4. NASACORT [Concomitant]
  5. ALBUTEROL INHALER (ALBUTEROL/ALBUTEROL SULFATE) [Concomitant]
  6. PATANOL [Concomitant]
  7. ELIDEL [Concomitant]

REACTIONS (2)
  - DRUG INEFFECTIVE [None]
  - SKIN TEST POSITIVE [None]
